FAERS Safety Report 21239790 (Version 1)
Quarter: 2022Q3

REPORT INFORMATION
  Report Type: Spontaneous
  Country: DE (occurrence: DE)
  Receive Date: 20220822
  Receipt Date: 20220822
  Transmission Date: 20221026
  Serious: No
  Sender: FDA-Public Use
  Company Number: DE-GLAXOSMITHKLINE-DE2022GSK120061

PATIENT

DRUGS (6)
  1. SOTROVIMAB [Suspect]
     Active Substance: SOTROVIMAB
     Indication: COVID-19 prophylaxis
     Dosage: 500 MG, Z EVERY 8 WEEKS
     Route: 042
     Dates: start: 20220210
  2. SIPONIMOD [Concomitant]
     Active Substance: SIPONIMOD
     Indication: Secondary progressive multiple sclerosis
     Dosage: UNK
  3. CASIRIVIMAB [Concomitant]
     Active Substance: CASIRIVIMAB
     Indication: COVID-19 prophylaxis
     Dosage: 600 MG, Z EVERY 4 WEEKS
     Route: 042
     Dates: start: 20211216
  4. CASIRIVIMAB [Concomitant]
     Active Substance: CASIRIVIMAB
     Dosage: 300 MG, Z EVERY 4 WEEKS
     Route: 042
     Dates: start: 20220113
  5. IMDEVIMAB [Concomitant]
     Active Substance: IMDEVIMAB
     Indication: COVID-19 prophylaxis
     Dosage: 600 MG, Z EVERY 4 WEEKS
     Route: 042
     Dates: start: 20211216
  6. IMDEVIMAB [Concomitant]
     Active Substance: IMDEVIMAB
     Dosage: 300 MG, Z EVERY 4 WEEKS
     Route: 042
     Dates: start: 20220113

REACTIONS (2)
  - Off label use [Unknown]
  - Drug ineffective for unapproved indication [Unknown]
